FAERS Safety Report 17018358 (Version 4)
Quarter: 2025Q4

REPORT INFORMATION
  Report Type: Report from Study
  Country: US (occurrence: US)
  Receive Date: 20191111
  Receipt Date: 20251022
  Transmission Date: 20260117
  Serious: Yes (Hospitalization, Other)
  Sender: NOVARTIS
  Company Number: None

PATIENT
  Age: 3 Year
  Sex: Male
  Weight: 13.152 kg

DRUGS (1)
  1. ZOLGENSMA [Suspect]
     Active Substance: ONASEMNOGENE ABEPARVOVEC-XIOI
     Indication: Spinal muscular atrophy
     Dosage: UNK, ONCE/SINGLE
     Route: 042
     Dates: start: 20190817, end: 20190817

REACTIONS (13)
  - Glomerulonephritis [Recovered/Resolved]
  - Heart rate decreased [Recovered/Resolved]
  - Periorbital swelling [Recovered/Resolved]
  - Eye swelling [Recovered/Resolved]
  - Peripheral swelling [Recovered/Resolved]
  - Blood urine present [Recovered/Resolved]
  - Proteinuria [Recovered/Resolved]
  - Hypoproteinaemia [Recovered/Resolved]
  - Hypertension [Unknown]
  - Blood urea increased [Recovered/Resolved]
  - Blood calcium increased [Recovered/Resolved]
  - Blood sodium increased [Recovered/Resolved]
  - Renal impairment [Recovered/Resolved]

NARRATIVE: CASE EVENT DATE: 20190817
